FAERS Safety Report 16894967 (Version 1)
Quarter: 2019Q4

REPORT INFORMATION
  Report Type: Spontaneous
  Country: US (occurrence: US)
  Receive Date: 20191008
  Receipt Date: 20191008
  Transmission Date: 20200122
  Serious: Yes (Hospitalization)
  Sender: FDA-Public Use
  Company Number: US-INDIVIOR LIMITED-INDV-120346-2019

PATIENT
  Age: 34 Year
  Sex: Male

DRUGS (2)
  1. SUBOXONE [Suspect]
     Active Substance: BUPRENORPHINE HYDROCHLORIDE\NALOXONE HYDROCHLORIDE
     Indication: DRUG DEPENDENCE
     Dosage: TAKING LOWER DOSE THAN PRESCRIBED BY CUTTING THE FILM
     Route: 060
  2. OXYCODONE [Suspect]
     Active Substance: OXYCODONE
     Indication: PRODUCT USED FOR UNKNOWN INDICATION
     Dosage: UNK, PILL FORM
     Route: 065

REACTIONS (4)
  - Wrong technique in product usage process [Recovered/Resolved]
  - Drug dependence [Unknown]
  - Drug detoxification [Unknown]
  - Intentional underdose [Recovered/Resolved]
